FAERS Safety Report 22035885 (Version 5)
Quarter: 2023Q1

REPORT INFORMATION
  Report Type: Spontaneous
  Country: PL (occurrence: PL)
  Receive Date: 20230224
  Receipt Date: 20230325
  Transmission Date: 20230418
  Serious: Yes (Other)
  Sender: FDA-Public Use
  Company Number: PL-002147023-NVSC2023PL038151

PATIENT
  Age: 50 Year
  Sex: Female

DRUGS (2)
  1. HYRIMOZ [Suspect]
     Active Substance: ADALIMUMAB-ADAZ
     Indication: Psoriasis
     Dosage: 40 MG, Q2W
     Route: 030
     Dates: start: 20210204, end: 20230301
  2. EUTHYROX [Concomitant]
     Active Substance: LEVOTHYROXINE SODIUM
     Indication: Hypothyroidism
     Dosage: 50 UG
     Route: 065

REACTIONS (10)
  - Thrombosis [Unknown]
  - Nephrolithiasis [Unknown]
  - Renal cyst [Unknown]
  - Fibrin D dimer increased [Unknown]
  - Post thrombotic syndrome [Unknown]
  - Gastrooesophageal reflux disease [Unknown]
  - Uterine leiomyoma [Unknown]
  - Inflammation [Unknown]
  - COVID-19 [Unknown]
  - Depression [Unknown]

NARRATIVE: CASE EVENT DATE: 20221001
